FAERS Safety Report 12506285 (Version 1)
Quarter: 2016Q2

REPORT INFORMATION
  Report Type: Spontaneous
  Country: JP (occurrence: JP)
  Receive Date: 20160628
  Receipt Date: 20160628
  Transmission Date: 20160815
  Serious: Yes (Death, Hospitalization, Other)
  Sender: FDA-Public Use
  Company Number: JP-ASTRAZENECA-2016SE70221

PATIENT
  Age: 49 Year
  Sex: Male

DRUGS (16)
  1. DELAMANID [Suspect]
     Active Substance: DELAMANID
     Indication: DRUG RESISTANCE
     Route: 048
     Dates: start: 20150430, end: 20150807
  2. STREPTOMYCIN [Concomitant]
     Active Substance: STREPTOMYCIN\STREPTOMYCIN SULFATE
     Indication: TUBERCULOSIS
     Dates: start: 20150213
  3. METRONIDAZOLE. [Concomitant]
     Active Substance: METRONIDAZOLE
     Indication: CLOSTRIDIUM DIFFICILE COLITIS
     Dates: start: 20150423, end: 20150529
  4. CYCLOSERINE. [Suspect]
     Active Substance: CYCLOSERINE
     Indication: TUBERCULOSIS
     Route: 048
     Dates: start: 20150324, end: 20150804
  5. SULBACILLIN [Suspect]
     Active Substance: AMPICILLIN SODIUM\SULBACTAM SODIUM
     Indication: PNEUMONIA
     Route: 042
     Dates: start: 20150512, end: 20150522
  6. SULBACILLIN [Suspect]
     Active Substance: AMPICILLIN SODIUM\SULBACTAM SODIUM
     Indication: PNEUMONIA
     Route: 042
     Dates: start: 20150803, end: 20150807
  7. BIFIDOBACTERIUM BIFIDUM [Concomitant]
     Dates: start: 20150404, end: 20150807
  8. SULBACILLIN [Suspect]
     Active Substance: AMPICILLIN SODIUM\SULBACTAM SODIUM
     Indication: PNEUMONIA
     Route: 042
     Dates: start: 20150803, end: 20150807
  9. SULBACILLIN [Suspect]
     Active Substance: AMPICILLIN SODIUM\SULBACTAM SODIUM
     Indication: PNEUMONIA
     Route: 042
     Dates: start: 20150512, end: 20150522
  10. FUNGUARD [Suspect]
     Active Substance: MICAFUNGIN SODIUM
     Indication: PNEUMONIA
     Route: 042
     Dates: start: 20150518, end: 20150601
  11. LEVOFLOXACIN. [Suspect]
     Active Substance: LEVOFLOXACIN
     Indication: TUBERCULOSIS
     Route: 048
     Dates: start: 20150210, end: 20150807
  12. NEXIUM [Suspect]
     Active Substance: ESOMEPRAZOLE MAGNESIUM
     Route: 048
     Dates: start: 20150414, end: 20150807
  13. ETHAMBUTOL HYDROCHLORIDE. [Suspect]
     Active Substance: ETHAMBUTOL HYDROCHLORIDE
     Indication: TUBERCULOSIS
     Route: 048
     Dates: start: 20150210, end: 20150807
  14. POLAPREZINC [Suspect]
     Active Substance: POLAPREZINC
     Route: 048
     Dates: start: 20150407, end: 20150807
  15. BAKTAR [Suspect]
     Active Substance: SULFAMETHOXAZOLE\TRIMETHOPRIM
     Indication: PNEUMONIA
     Route: 048
     Dates: start: 20150601, end: 20150610
  16. AMINOSALICYLATE CALCIUM [Suspect]
     Active Substance: AMINOSALICYLATE CALCIUM
     Indication: TUBERCULOSIS
     Route: 048
     Dates: start: 20150324, end: 20150807

REACTIONS (6)
  - Hyperkalaemia [Recovered/Resolved]
  - Pneumothorax [Recovered/Resolved with Sequelae]
  - Mental disorder [Not Recovered/Not Resolved]
  - Clostridium difficile colitis [Recovered/Resolved]
  - Liver disorder [Recovered/Resolved]
  - Pneumonia [Fatal]

NARRATIVE: CASE EVENT DATE: 20150511
